FAERS Safety Report 13190517 (Version 3)
Quarter: 2017Q1

REPORT INFORMATION
  Report Type: Report from Study
  Country: IT (occurrence: IT)
  Receive Date: 20170206
  Receipt Date: 20170329
  Transmission Date: 20170428
  Serious: Yes (Hospitalization, Other)
  Sender: FDA-Public Use
  Company Number: PHHY2013IT173001

PATIENT
  Age: 60 Year
  Sex: Male
  Weight: 66 kg

DRUGS (2)
  1. VOTRIENT [Suspect]
     Active Substance: PAZOPANIB HYDROCHLORIDE
     Indication: RENAL CELL CARCINOMA
     Dosage: 800 MG, QD
     Route: 048
     Dates: start: 20121109, end: 20121129
  2. HEPARIN [Concomitant]
     Active Substance: HEPARIN SODIUM
     Indication: DEEP VEIN THROMBOSIS
     Dosage: 4000 IU, BID
     Route: 058
     Dates: start: 20121027, end: 20121129

REACTIONS (7)
  - Deep vein thrombosis [Not Recovered/Not Resolved]
  - Abdominal pain [Unknown]
  - Vena cava thrombosis [Unknown]
  - Splenic vein thrombosis [Unknown]
  - Malignant neoplasm progression [Unknown]
  - Cholecystitis [Recovered/Resolved]
  - Metastases to liver [Unknown]

NARRATIVE: CASE EVENT DATE: 20121129
